FAERS Safety Report 19621034 (Version 1)
Quarter: 2021Q3

REPORT INFORMATION
  Report Type: Spontaneous
  Country: US (occurrence: US)
  Receive Date: 20210727
  Receipt Date: 20210727
  Transmission Date: 20211014
  Serious: Yes (Other)
  Sender: FDA-Public Use
  Company Number: None

PATIENT
  Age: 61 Year
  Sex: Female

DRUGS (20)
  1. CLACIUM ACETATE [Concomitant]
  2. MUPIROCIN TOP OINT [Concomitant]
  3. CELLEPT [Concomitant]
  4. FERROUS GLUCONATE [Concomitant]
     Active Substance: FERROUS GLUCONATE
  5. MVI [Concomitant]
     Active Substance: VITAMINS
  6. OPSUMIT [Suspect]
     Active Substance: MACITENTAN
     Indication: PULMONARY ARTERIAL HYPERTENSION
     Route: 048
     Dates: start: 20180504
  7. FLEXERIL [Concomitant]
     Active Substance: CYCLOBENZAPRINE HYDROCHLORIDE
  8. OMEPRAZOLE. [Concomitant]
     Active Substance: OMEPRAZOLE
  9. CAPTOPRIL. [Concomitant]
     Active Substance: CAPTOPRIL
  10. POTASSIUM CHLORIDE. [Concomitant]
     Active Substance: POTASSIUM CHLORIDE
  11. PREDNISONE. [Concomitant]
     Active Substance: PREDNISONE
  12. ATORVASTATIN [Concomitant]
     Active Substance: ATORVASTATIN
  13. TORSEMIDE. [Concomitant]
     Active Substance: TORSEMIDE
  14. WARFARIN [Concomitant]
     Active Substance: WARFARIN
  15. SILDENAFIL. [Concomitant]
     Active Substance: SILDENAFIL
  16. ALBUTEROL HFA [Concomitant]
     Active Substance: ALBUTEROL SULFATE
  17. ZOFRAN [Concomitant]
     Active Substance: ONDANSETRON HYDROCHLORIDE
  18. NORCO [Concomitant]
     Active Substance: ACETAMINOPHEN\HYDROCODONE BITARTRATE
  19. ALBUTEROL INHL NEB SOLN [Concomitant]
     Active Substance: ALBUTEROL
  20. IPRATROPIUM INHL SOLN [Concomitant]

REACTIONS (2)
  - Dyspnoea exertional [None]
  - Anaemia [None]

NARRATIVE: CASE EVENT DATE: 20210721
